FAERS Safety Report 7770902-7 (Version None)
Quarter: 2011Q3

REPORT INFORMATION
  Report Type: 
  Country: None (occurrence: None)
  Receive Date: 20110922
  Receipt Date: 20110223
  Transmission Date: 20111222
  Serious: No
  Sender: FDA-Public Use
  Company Number: US-ASTRAZENECA-2007UW02099

PATIENT
  Age: 44 Year
  Sex: Female
  Weight: 113.4 kg

DRUGS (27)
  1. CELEXA [Concomitant]
     Route: 048
     Dates: start: 19990729
  2. PREMARIN [Concomitant]
     Dates: start: 19940922
  3. AMBIEN [Concomitant]
     Dates: start: 19990202
  4. SEROQUEL [Suspect]
     Dosage: 25-400 MG
     Route: 048
     Dates: start: 19990202
  5. RISPERDAL [Concomitant]
     Dates: start: 20070101
  6. NAVANE [Concomitant]
     Dates: start: 19940922
  7. METOPROLOL TARTRATE [Concomitant]
     Route: 048
     Dates: start: 20041128
  8. IMITREX [Concomitant]
     Dates: start: 20020903
  9. LAMICTAL [Concomitant]
     Route: 048
     Dates: start: 20060613
  10. NEURONTIN [Concomitant]
     Dates: start: 20020903
  11. RISPERDAL [Concomitant]
     Route: 048
     Dates: start: 20041128
  12. TRAZODONE HYDROCHLORIDE [Concomitant]
     Route: 048
     Dates: start: 20060613
  13. LEVOTHYROXINE SODIUM [Concomitant]
     Route: 048
     Dates: start: 20060613
  14. ASPIRIN [Concomitant]
     Route: 048
     Dates: start: 20041128
  15. COGENTIN [Concomitant]
     Dates: start: 19940922
  16. HYDROXYCHLOROQUINE SULFATE [Concomitant]
     Dates: start: 20020903
  17. CELEXA [Concomitant]
     Dosage: 30 MG QC
     Dates: start: 20000313
  18. ZOLOFT [Concomitant]
     Dosage: THREE TABS AM
     Dates: start: 19940922
  19. COLACE [Concomitant]
     Route: 048
     Dates: start: 20041128
  20. PROPRANOLOL [Concomitant]
     Route: 048
     Dates: start: 19990202
  21. ATIVAN [Concomitant]
     Dates: start: 19940922
  22. DEPAKOTE [Concomitant]
     Dates: start: 20000313
  23. MYLANTA [Concomitant]
     Dosage: QC
     Dates: start: 20000313
  24. SEROQUEL [Suspect]
     Indication: ANXIETY
     Route: 048
     Dates: start: 19970101, end: 20060101
  25. SEROQUEL [Suspect]
     Route: 048
     Dates: start: 20000313
  26. ABILIFY [Concomitant]
     Route: 048
     Dates: start: 20060613
  27. DEPAKOTE [Concomitant]
     Dosage: 1000-1500 MG
     Dates: start: 19990202

REACTIONS (5)
  - HYPOTHYROIDISM [None]
  - THYROID DISORDER [None]
  - TYPE 1 DIABETES MELLITUS [None]
  - TYPE 2 DIABETES MELLITUS [None]
  - HYPERTENSION [None]
